FAERS Safety Report 10214321 (Version 1)
Quarter: 2014Q2

REPORT INFORMATION
  Report Type: Report from Study
  Country: US (occurrence: US)
  Receive Date: 20140603
  Receipt Date: 20140603
  Transmission Date: 20141212
  Serious: Yes (Hospitalization)
  Sender: FDA-Public Use
  Company Number: US-JNJFOC-20140517288

PATIENT
  Age: 68 Year
  Sex: Male
  Weight: 93.9 kg

DRUGS (12)
  1. REMICADE [Suspect]
     Indication: PSORIASIS
     Route: 042
     Dates: start: 2013
  2. REMICADE [Suspect]
     Indication: PSORIATIC ARTHROPATHY
     Route: 042
     Dates: start: 2013
  3. MORPHINE [Concomitant]
     Route: 048
     Dates: start: 2000
  4. CITALOPRAM [Concomitant]
     Route: 048
     Dates: start: 2000
  5. LORAZEPAM [Concomitant]
     Route: 048
     Dates: start: 2000
  6. OMEPRAZOLE [Concomitant]
     Route: 048
     Dates: start: 2000
  7. LEFLUNOMIDE [Concomitant]
     Route: 048
     Dates: start: 2000
  8. ATENOLOL [Concomitant]
     Dosage: 50 - 25 MG
     Route: 048
     Dates: start: 2000
  9. GLIMEPIRIDE [Concomitant]
     Dosage: 50 - 25 MG
     Route: 048
     Dates: start: 2000
  10. METFORMIN [Concomitant]
     Dosage: 50 - 25 MG
     Route: 048
     Dates: start: 2000
  11. POTASSIUM CHLORIDE [Concomitant]
     Route: 048
  12. HYDROCODONE [Concomitant]
     Indication: PAIN
     Dosage: 7.5/325MG TABLET AS NEEDED
     Route: 048

REACTIONS (1)
  - Polyp [Recovered/Resolved]
